FAERS Safety Report 4532035-2 (Version None)
Quarter: 2004Q4

REPORT INFORMATION
  Report Type: 
  Country: None (occurrence: None)
  Receive Date: 20041220
  Receipt Date: 20041109
  Transmission Date: 20050328
  Serious: Yes (Other)
  Sender: FDA-Public Use
  Company Number: GB-GLAXOSMITHKLINE-B0351001A

PATIENT
  Age: 83 Year
  Sex: Female
  Weight: 47 kg

DRUGS (8)
  1. ALKERAN [Suspect]
     Indication: MULTIPLE MYELOMA
     Route: 065
     Dates: start: 20010101
  2. STEROIDS [Concomitant]
     Dosage: 2MG TWICE PER DAY
     Route: 065
  3. TELMISARTAN [Concomitant]
     Dosage: 80MG IN THE MORNING
     Route: 065
  4. ALLOPURINOL [Concomitant]
     Dosage: 300MG IN THE MORNING
  5. OMEPRAZOLE [Concomitant]
     Dosage: 10MG IN THE MORNING
  6. ATENOLOL [Concomitant]
     Dosage: 50MG IN THE MORNING
  7. TEMAZEPAM [Concomitant]
  8. FENTANYL [Concomitant]

REACTIONS (4)
  - DIARRHOEA [None]
  - FEELING ABNORMAL [None]
  - SYNCOPE [None]
  - VOMITING [None]
